FAERS Safety Report 10625158 (Version 1)
Quarter: 2014Q4

REPORT INFORMATION
  Report Type: Spontaneous
  Country: AU (occurrence: None)
  Receive Date: 20141202
  Receipt Date: 20141202
  Transmission Date: 20150529
  Serious: Yes (Other)
  Sender: FDA-Public Use
  Company Number: AU-ALSI-201400238

PATIENT
  Age: 13 Week

DRUGS (2)
  1. NITROUS OXIDE. [Suspect]
     Active Substance: NITROUS OXIDE
     Indication: INGUINAL HERNIA REPAIR
  2. SEVOFLURANCE BAXTER [Suspect]
     Active Substance: SEVOFLURANE
     Indication: INGUINAL HERNIA REPAIR

REACTIONS (7)
  - Bradycardia [None]
  - Ventricular fibrillation [None]
  - Hypotension [None]
  - Tachycardia [None]
  - Cardiac arrest [None]
  - Seizure [None]
  - Cardiac output decreased [None]
